FAERS Safety Report 4285550-3 (Version None)
Quarter: 2004Q1

REPORT INFORMATION
  Report Type: 
  Country: None (occurrence: None)
  Receive Date: 20040203
  Receipt Date: 20040122
  Transmission Date: 20041129
  Serious: Yes (Hospitalization)
  Sender: FDA-Public Use
  Company Number: 03P-083-0240661-00

PATIENT
  Age: 42 Year
  Sex: Female

DRUGS (2)
  1. MERIDIA [Suspect]
     Indication: OVERWEIGHT
     Dosage: 10 MG, 1 IN 1 D, PER ORAL
     Route: 048
     Dates: start: 20010520, end: 20010623
  2. GABAPENTIN [Concomitant]

REACTIONS (3)
  - AGITATION [None]
  - DYSTHYMIC DISORDER [None]
  - MALAISE [None]
